FAERS Safety Report 11768466 (Version 1)
Quarter: 2015Q4

REPORT INFORMATION
  Report Type: Spontaneous
  Country: JP (occurrence: JP)
  Receive Date: 20151123
  Receipt Date: 20151123
  Transmission Date: 20160304
  Serious: Yes (Other)
  Sender: FDA-Public Use
  Company Number: JP-MYLANLABS-2015M1039681

PATIENT

DRUGS (2)
  1. TACROLIMUS CAPSULES 0.5MG [PFIZER] [Suspect]
     Active Substance: TACROLIMUS
     Indication: DUST INHALATION PNEUMOPATHY
     Route: 048
  2. PREDNISOLONE TABLETS 1^HOEI^ [Suspect]
     Active Substance: PREDNISOLONE
     Indication: DUST INHALATION PNEUMOPATHY
     Route: 048

REACTIONS (2)
  - Drug interaction [Unknown]
  - Mycobacterium avium complex infection [Recovering/Resolving]
